APPROVED DRUG PRODUCT: ZITUVIO
Active Ingredient: SITAGLIPTIN
Strength: 50MG
Dosage Form/Route: TABLET;ORAL
Application: N211566 | Product #002
Applicant: ZYDUS LIFESCIENCES GLOBAL FZE
Approved: Oct 18, 2023 | RLD: Yes | RS: No | Type: RX

PATENTS:
Patent 10925871 | Expires: Feb 25, 2035